FAERS Safety Report 13390579 (Version 1)
Quarter: 2017Q1

REPORT INFORMATION
  Report Type: Spontaneous
  Country: US (occurrence: US)
  Receive Date: 20170331
  Receipt Date: 20170331
  Transmission Date: 20170429
  Serious: No
  Sender: FDA-Public Use
  Company Number: US-BAYER-2017-061199

PATIENT
  Sex: Male

DRUGS (2)
  1. BENADRYL [CAMPHOR,DIPHENHYDRAMINE HYDROCHLORIDE,ZINC OXIDE] [Concomitant]
     Dosage: UNK
  2. CLARITIN [Suspect]
     Active Substance: LORATADINE
     Dosage: UNK

REACTIONS (1)
  - Drug effect incomplete [Unknown]
